FAERS Safety Report 6572176-1 (Version None)
Quarter: 2010Q1

REPORT INFORMATION
  Report Type: 
  Country: None (occurrence: None)
  Receive Date: 20100205
  Receipt Date: 20100201
  Transmission Date: 20100710
  Serious: Yes (Other)
  Sender: FDA-Public Use
  Company Number: B0630360A

PATIENT
  Age: 40 Year
  Sex: Male

DRUGS (1)
  1. BECOTIDE [Suspect]
     Indication: DRUG USE FOR UNKNOWN INDICATION
     Route: 055
     Dates: start: 20090101, end: 20090101

REACTIONS (1)
  - VOCAL CORD PARALYSIS [None]
